FAERS Safety Report 16311251 (Version 2)
Quarter: 2020Q4

REPORT INFORMATION
  Report Type: Spontaneous
  Country: US (occurrence: US)
  Receive Date: 20190514
  Receipt Date: 20201222
  Transmission Date: 20210113
  Serious: Yes (Death, Hospitalization, Other)
  Sender: FDA-Public Use
  Company Number: US-ASTRAZENECA-2019SE71886

PATIENT
  Age: 21032 Day
  Sex: Female

DRUGS (83)
  1. PRILOSEC [Suspect]
     Active Substance: OMEPRAZOLE MAGNESIUM
     Indication: GASTROOESOPHAGEAL REFLUX DISEASE
     Route: 065
     Dates: start: 20161125, end: 20161203
  2. PRILOSEC OTC [Suspect]
     Active Substance: OMEPRAZOLE MAGNESIUM
     Route: 048
  3. VALIUM [Concomitant]
     Active Substance: DIAZEPAM
  4. MIRALAX [Concomitant]
     Active Substance: POLYETHYLENE GLYCOL 3350
  5. PHENERGAN [Concomitant]
     Active Substance: PROMETHAZINE HYDROCHLORIDE
  6. HYDROCHLOROTHIAZIDE-LISINOPRIL [Concomitant]
     Active Substance: HYDROCHLOROTHIAZIDE\LISINOPRIL
  7. BACTRIM [Concomitant]
     Active Substance: SULFAMETHOXAZOLE\TRIMETHOPRIM
  8. ENOXAPARIN [Concomitant]
     Active Substance: ENOXAPARIN
  9. ALUMINIUM HYDROXIDE [Concomitant]
     Active Substance: ALUMINUM HYDROXIDE
  10. PRILOSEC [Suspect]
     Active Substance: OMEPRAZOLE MAGNESIUM
     Indication: GASTROOESOPHAGEAL REFLUX DISEASE
     Route: 048
  11. PRILOSEC [Suspect]
     Active Substance: OMEPRAZOLE MAGNESIUM
     Indication: GASTROOESOPHAGEAL REFLUX DISEASE
     Route: 065
     Dates: start: 20150527, end: 20151217
  12. PRILOSEC [Suspect]
     Active Substance: OMEPRAZOLE MAGNESIUM
     Indication: GASTROOESOPHAGEAL REFLUX DISEASE
     Route: 065
     Dates: start: 20131224
  13. PREVACID 24 HR [Suspect]
     Active Substance: LANSOPRAZOLE
     Route: 065
  14. PROTONIX [Suspect]
     Active Substance: PANTOPRAZOLE SODIUM
     Indication: GASTROOESOPHAGEAL REFLUX DISEASE
     Dosage: 20-40 MG DAILY - GENERIC
     Route: 065
     Dates: start: 20150527, end: 20151221
  15. ATORVASTATIN [Concomitant]
     Active Substance: ATORVASTATIN
     Indication: BLOOD CHOLESTEROL ABNORMAL
  16. LISINOPRIL. [Concomitant]
     Active Substance: LISINOPRIL
     Indication: HYPERTENSION
  17. LANTUS [Concomitant]
     Active Substance: INSULIN GLARGINE
     Indication: DIABETES MELLITUS
  18. DILTIAZEM. [Concomitant]
     Active Substance: DILTIAZEM
  19. COLACE [Concomitant]
     Active Substance: DOCUSATE SODIUM
  20. DIALYVITE [Concomitant]
     Active Substance: ASCORBIC ACID\BIOTIN\CALCIUM PANTOTHENATE\COBALAMIN\FOLIC ACID\NIACINAMIDE\PYRIDOXINE HYDROCHLORIDE\RIBOFLAVIN\THIAMINE MONONITRATE
  21. HEPARIN [Concomitant]
     Active Substance: HEPARIN SODIUM
  22. SENNA [Concomitant]
     Active Substance: SENNA LEAF\SENNOSIDES\SENNOSIDES A AND B
  23. VITAMIN D [Concomitant]
     Active Substance: VITAMIN D NOS
  24. FENTANYL. [Concomitant]
     Active Substance: FENTANYL
  25. DIPHENHYDRAMINE. [Concomitant]
     Active Substance: DIPHENHYDRAMINE
  26. PNEUMOCOCCAL POLYSACCHRIDE [Concomitant]
  27. TUMS [Concomitant]
     Active Substance: CALCIUM CARBONATE
  28. LYRICA [Concomitant]
     Active Substance: PREGABALIN
  29. SPIRONOLACTONE. [Concomitant]
     Active Substance: SPIRONOLACTONE
  30. VITAMIN B COMPLEX [Concomitant]
     Active Substance: CYANOCOBALAMIN\DEXPANTHENOL\NIACINAMIDE\PYRIDOXINE HYDROCHLORIDE\RIBOFLAVIN 5^-PHOSPHATE SODIUM\THIAMINE HYDROCHLORIDE\VITAMIN B COMPLEX
  31. POTASSIUM CHLORIDE. [Concomitant]
     Active Substance: POTASSIUM CHLORIDE
  32. PREVACID [Suspect]
     Active Substance: LANSOPRAZOLE
     Indication: GASTROOESOPHAGEAL REFLUX DISEASE
     Route: 065
     Dates: start: 20130530, end: 20130623
  33. PROTONIX [Suspect]
     Active Substance: PANTOPRAZOLE SODIUM
     Indication: GASTROOESOPHAGEAL REFLUX DISEASE
     Dosage: 20-40 MG DAILY - GENERIC
     Route: 065
     Dates: start: 20161125, end: 20161214
  34. TYLENOL [Concomitant]
     Active Substance: ACETAMINOPHEN
     Indication: PAIN
  35. MAALOX ANTACID [Concomitant]
     Active Substance: ALUMINUM HYDROXIDE\DIMETHICONE\MAGNESIUM HYDROXIDE
  36. IODINE. [Concomitant]
     Active Substance: IODINE
  37. DIGOXIN. [Concomitant]
     Active Substance: DIGOXIN
  38. DILAUDID [Concomitant]
     Active Substance: HYDROMORPHONE HYDROCHLORIDE
  39. ASCORBIC ACID. [Concomitant]
     Active Substance: ASCORBIC ACID
  40. PETROLATUM-MINERAL OIL [Concomitant]
  41. ONDANSETRON [Concomitant]
     Active Substance: ONDANSETRON
  42. ZOLPIDEM [Concomitant]
     Active Substance: ZOLPIDEM TARTRATE
  43. DEXTROSE. [Concomitant]
     Active Substance: DEXTROSE
  44. SODIUM CHLORIDE. [Concomitant]
     Active Substance: SODIUM CHLORIDE
  45. FLUTICASONE. [Concomitant]
     Active Substance: FLUTICASONE
     Indication: ASTHMA
  46. PHOSLO [Concomitant]
     Active Substance: CALCIUM ACETATE
  47. FLONASE [Concomitant]
     Active Substance: FLUTICASONE PROPIONATE
  48. PERCOCET [Concomitant]
     Active Substance: ACETAMINOPHEN\OXYCODONE HYDROCHLORIDE
  49. IRON [Concomitant]
     Active Substance: IRON
  50. MULTIVITAMINS [Concomitant]
     Active Substance: VITAMINS
  51. RENVELA [Concomitant]
     Active Substance: SEVELAMER CARBONATE
  52. NORCO [Concomitant]
     Active Substance: ACETAMINOPHEN\HYDROCODONE BITARTRATE
  53. CEFTIN [Concomitant]
     Active Substance: CEFUROXIME AXETIL
  54. LOVENOX [Concomitant]
     Active Substance: ENOXAPARIN SODIUM
  55. MIDODRINE [Concomitant]
     Active Substance: MIDODRINE
  56. SORBITOL. [Concomitant]
     Active Substance: SORBITOL
  57. PROTONIX [Suspect]
     Active Substance: PANTOPRAZOLE SODIUM
     Indication: GASTROOESOPHAGEAL REFLUX DISEASE
     Route: 065
     Dates: start: 20150527, end: 20150529
  58. PROTONIX [Suspect]
     Active Substance: PANTOPRAZOLE SODIUM
     Indication: GASTROOESOPHAGEAL REFLUX DISEASE
     Dosage: 20-40 MG DAILY - GENERIC
     Route: 065
     Dates: start: 20140503, end: 20140519
  59. PREDNISONE. [Concomitant]
     Active Substance: PREDNISONE
     Indication: INFLAMMATION
  60. ASPIRIN. [Concomitant]
     Active Substance: ASPIRIN
     Indication: PAIN
  61. ZANTAC [Concomitant]
     Active Substance: RANITIDINE HYDROCHLORIDE
  62. PEPTO-BISMOL [Concomitant]
     Active Substance: BISMUTH SUBSALICYLATE
  63. PRAVASTATIN. [Concomitant]
     Active Substance: PRAVASTATIN
  64. MINOXIDIL. [Concomitant]
     Active Substance: MINOXIDIL
  65. PRAVACHOL [Concomitant]
     Active Substance: PRAVASTATIN SODIUM
  66. WARFARIN [Concomitant]
     Active Substance: WARFARIN
  67. PROTONIX [Suspect]
     Active Substance: PANTOPRAZOLE SODIUM
     Indication: GASTROOESOPHAGEAL REFLUX DISEASE
     Dosage: 20-40 MG DAILY - GENERIC
     Route: 065
     Dates: start: 20130529, end: 20131207
  68. GABAPENTIN. [Concomitant]
     Active Substance: GABAPENTIN
     Indication: PAIN
  69. CLONIDINE. [Concomitant]
     Active Substance: CLONIDINE
  70. PROMETHAZINE [Concomitant]
     Active Substance: PROMETHAZINE HYDROCHLORIDE
  71. PARICALCITOL. [Concomitant]
     Active Substance: PARICALCITOL
  72. EPOGEN [Concomitant]
     Active Substance: ERYTHROPOIETIN
  73. CLINDAMYCIN. [Concomitant]
     Active Substance: CLINDAMYCIN
  74. MORPHINE [Concomitant]
     Active Substance: MORPHINE
  75. NITROGLYCERIN. [Concomitant]
     Active Substance: NITROGLYCERIN
  76. GLUCAGON. [Concomitant]
     Active Substance: GLUCAGON
  77. HYDROMORPHONE [Concomitant]
     Active Substance: HYDROMORPHONE
  78. NEXIUM [Suspect]
     Active Substance: ESOMEPRAZOLE MAGNESIUM
     Route: 048
  79. IBUPROFEN. [Concomitant]
     Active Substance: IBUPROFEN
  80. COUMADIN [Concomitant]
     Active Substance: WARFARIN SODIUM
  81. NEPHROCAPS [Concomitant]
     Active Substance: ASCORBIC ACID\BIOTIN\CYANOCOBALAMIN\FOLIC ACID\NIACIN\PANTOTHENIC ACID\PYRIDOXINE\RIBOFLAVIN\THIAMINE
  82. OXYGEN. [Concomitant]
     Active Substance: OXYGEN
  83. PROTAMINE [Concomitant]
     Active Substance: PROTAMINE

REACTIONS (4)
  - Nephrogenic anaemia [Unknown]
  - End stage renal disease [Unknown]
  - Renal failure [Unknown]
  - Chronic kidney disease [Unknown]

NARRATIVE: CASE EVENT DATE: 20130530
